FAERS Safety Report 10946308 (Version 3)
Quarter: 2018Q4

REPORT INFORMATION
  Report Type: Spontaneous
  Country: HR (occurrence: HR)
  Receive Date: 20150323
  Receipt Date: 20181217
  Transmission Date: 20190204
  Serious: Yes (Hospitalization, Other)
  Sender: FDA-Public Use
  Company Number: HR-GLAXOSMITHKLINE INC.-HR2015GSK036689

PATIENT
  Sex: Female

DRUGS (1)
  1. NOVOCEF [Suspect]
     Active Substance: CEFUROXIME AXETIL
     Indication: CYSTITIS NONINFECTIVE
     Dosage: 500 MG, BID
     Route: 048

REACTIONS (3)
  - Maternal exposure during pregnancy [Unknown]
  - Diarrhoea [Unknown]
  - Clostridium difficile infection [Unknown]
